FAERS Safety Report 8294495-3 (Version None)
Quarter: 2012Q2

REPORT INFORMATION
  Report Type: 
  Country: None (occurrence: None)
  Receive Date: 20120418
  Receipt Date: 20120413
  Transmission Date: 20120825
  Serious: Yes (Hospitalization)
  Sender: FDA-Public Use
  Company Number: PHHO2012FR005899

PATIENT
  Sex: Female
  Weight: 67 kg

DRUGS (21)
  1. AFINITOR [Suspect]
     Indication: NEUROFIBROMATOSIS
     Dosage: 10 MG, UNK
     Route: 048
     Dates: start: 20120227, end: 20120411
  2. ANAFRANIL [Concomitant]
     Indication: DEPRESSION
     Dosage: 75 MG, UNK
     Route: 048
     Dates: start: 20100101
  3. ALPRAZOLAM [Concomitant]
     Indication: DEPRESSION
     Dosage: 1.5 MG, UNK
     Dates: start: 20100101
  4. ACETAMINOPHEN [Concomitant]
     Indication: DRY MOUTH
     Dosage: 1 G, UNK
     Route: 048
     Dates: start: 20120302, end: 20120302
  5. ATARAX [Concomitant]
     Indication: DEPRESSION
     Dosage: 100 MG, UNK
     Dates: start: 20100101
  6. ACETAMINOPHEN [Concomitant]
     Indication: HEADACHE
     Dosage: 1 G, UNK
     Route: 048
     Dates: start: 20120229, end: 20120229
  7. ACETAMINOPHEN [Concomitant]
     Indication: TOOTH ABSCESS
     Dosage: 1 G, UNK
     Route: 048
     Dates: start: 20120307, end: 20120308
  8. MAGNESIUM HYDROXIDE TAB [Concomitant]
     Dosage: UNK
     Dates: start: 20120307, end: 20120307
  9. PAROXETINE [Concomitant]
     Indication: DEPRESSION
     Dosage: 40 MG, UNK
     Route: 048
     Dates: start: 20100101
  10. ACETAMINOPHEN [Concomitant]
     Dosage: 4 G, UNK
     Dates: start: 20120312, end: 20120317
  11. OXYCODONE HCL [Concomitant]
     Indication: PAIN
     Dosage: 20 MG, DAILY
     Route: 048
     Dates: start: 20100101
  12. MAGNESIUM HYDROXIDE TAB [Concomitant]
     Indication: DYSPEPSIA
     Dosage: 1 DF, UNK
     Route: 048
     Dates: start: 20120301, end: 20120301
  13. ELUDRIL [Concomitant]
     Indication: ULCER
     Dosage: UNK
     Dates: start: 20120308, end: 20120313
  14. SULFARLEM [Concomitant]
     Indication: DRY MOUTH
     Dosage: 6 DF, DAILY
     Route: 048
     Dates: start: 19990901
  15. OMEPRAZOLE [Concomitant]
     Dosage: UNK
     Dates: start: 20120311, end: 20120311
  16. PREDNISOLONE [Concomitant]
     Indication: ULCER
     Dosage: UNK
     Dates: start: 20120308, end: 20120313
  17. IBUPROFEN [Concomitant]
     Indication: TOOTH ABSCESS
     Dosage: 200 MG, UNK
     Route: 048
     Dates: start: 20120314, end: 20120317
  18. OXYCONTIN [Concomitant]
     Indication: PAIN
     Dosage: 80 MG, DAILY
  19. OMEPRAZOLE [Concomitant]
     Indication: DYSPEPSIA
     Dosage: UNK
     Route: 048
     Dates: start: 20120307, end: 20120307
  20. NEURONTIN [Concomitant]
     Indication: PAIN
     Dosage: 2400 MG, UNK
     Dates: start: 19990901
  21. AMOXICILLIN [Concomitant]
     Indication: TOOTH ABSCESS
     Dosage: UNK
     Route: 048
     Dates: start: 20120312, end: 20120315

REACTIONS (1)
  - UTERINE LEIOMYOMA [None]
